FAERS Safety Report 5419826-0 (Version None)
Quarter: 2007Q3

REPORT INFORMATION
  Report Type: 
  Country: None (occurrence: None)
  Receive Date: 20070820
  Receipt Date: 20070814
  Transmission Date: 20080115
  Serious: Yes (Hospitalization)
  Sender: FDA-Public Use
  Company Number: MY-PFIZER INC-2007066636

PATIENT
  Sex: Female
  Weight: 48 kg

DRUGS (2)
  1. ZIPRASIDONE HCL [Suspect]
     Indication: SCHIZOPHRENIA
     Dosage: DAILY DOSE:60MG
     Route: 048
  2. LORAZEPAM [Concomitant]

REACTIONS (1)
  - LIBIDO INCREASED [None]
